FAERS Safety Report 10386225 (Version 1)
Quarter: 2014Q3

REPORT INFORMATION
  Report Type: Report from Study
  Country: BR (occurrence: BR)
  Receive Date: 20140814
  Receipt Date: 20140814
  Transmission Date: 20150326
  Serious: Yes (Other)
  Sender: FDA-Public Use
  Company Number: PHHY2014BR101324

PATIENT
  Sex: Female
  Weight: 54 kg

DRUGS (5)
  1. NOEX [Concomitant]
     Indication: ASTHMA
     Dosage: UNK UKN, UNK
  2. BETOPTIC S [Concomitant]
     Active Substance: BETAXOLOL HYDROCHLORIDE
     Indication: GLAUCOMA
     Dosage: UNK UKN, UNK
  3. MIACALCIC [Suspect]
     Active Substance: CALCITONIN SALMON
     Indication: OSTEOPOROSIS
     Dosage: 2 ML (1 SQUIRT), ONCE IN THE MORNING BEFORE BREAKFAST
     Route: 045
  4. GLIFAGE [Concomitant]
     Active Substance: METFORMIN HYDROCHLORIDE
     Indication: BLOOD GLUCOSE ABNORMAL
     Dosage: UNK UKN, UNK
  5. MIFLASONE [Suspect]
     Active Substance: BECLOMETHASONE DIPROPIONATE
     Indication: ASTHMA
     Dosage: UNK UKN, UNK

REACTIONS (11)
  - Syncope [Unknown]
  - Spinal column injury [Unknown]
  - Wheezing [Unknown]
  - Pain in extremity [Unknown]
  - Wrong technique in drug usage process [Unknown]
  - Arthralgia [Unknown]
  - Aneurysm [Unknown]
  - Musculoskeletal chest pain [Unknown]
  - Spinal pain [Unknown]
  - Heart injury [Unknown]
  - Headache [Unknown]
